FAERS Safety Report 5760440-5 (Version None)
Quarter: 2008Q2

REPORT INFORMATION
  Report Type: 
  Country: None (occurrence: None)
  Receive Date: 20080602
  Receipt Date: 20080522
  Transmission Date: 20081010
  Serious: Yes (Hospitalization)
  Sender: FDA-Public Use
  Company Number: 2008BI013283

PATIENT
  Age: 45 Year
  Sex: Female

DRUGS (2)
  1. TYSABRI [Suspect]
     Indication: MULTIPLE SCLEROSIS
     Dosage: 300 MG;QM;IV
     Route: 042
     Dates: start: 20080222
  2. PROTONIX [Concomitant]

REACTIONS (4)
  - DECUBITUS ULCER [None]
  - INFECTED SKIN ULCER [None]
  - PYREXIA [None]
  - URINARY TRACT INFECTION [None]
